FAERS Safety Report 16715481 (Version 1)
Quarter: 2019Q3

REPORT INFORMATION
  Report Type: Spontaneous
  Country: US (occurrence: US)
  Receive Date: 20190816
  Receipt Date: 20190816
  Transmission Date: 20191005
  Serious: Yes (Life-Threatening)
  Sender: FDA-Public Use
  Company Number: None

PATIENT
  Age: 65 Year
  Sex: Female
  Weight: 81.1 kg

DRUGS (2)
  1. ABEMACICLIB [Suspect]
     Active Substance: ABEMACICLIB
     Indication: BREAST CANCER METASTATIC
     Route: 048
     Dates: start: 20190205, end: 20190805
  2. LETROZOLE. [Concomitant]
     Active Substance: LETROZOLE
     Dates: start: 20190205, end: 20190719

REACTIONS (2)
  - Fibrosis [None]
  - Pneumonitis [None]

NARRATIVE: CASE EVENT DATE: 20190802
